FAERS Safety Report 11933833 (Version 1)
Quarter: 2016Q1

REPORT INFORMATION
  Report Type: Spontaneous
  Country: TR (occurrence: TR)
  Receive Date: 20160121
  Receipt Date: 20160121
  Transmission Date: 20160526
  Serious: Yes (Life-Threatening)
  Sender: FDA-Public Use
  Company Number: TR-WATSON-2016-00909

PATIENT
  Age: 68 Year
  Sex: Male

DRUGS (5)
  1. MOXIFLOXACIN (UNKNOWN) [Suspect]
     Active Substance: MOXIFLOXACIN
     Indication: PRODUCT USED FOR UNKNOWN INDICATION
     Dosage: UNK
     Route: 065
  2. CEFTAZIDIME (UNKNOWN) [Suspect]
     Active Substance: CEFTAZIDIME
     Indication: PRODUCT USED FOR UNKNOWN INDICATION
     Dosage: 1 G, UNKNOWN
     Route: 033
  3. PHYSIONEAL GLUCOSA [Concomitant]
     Indication: PERITONEAL DIALYSIS
     Dosage: 4 ? 2 L: 2 ? 2.27%; 2 ? 1.36%
     Route: 065
  4. ICODEXTRIN [Concomitant]
     Active Substance: ICODEXTRIN
     Indication: PERITONEAL DIALYSIS
     Dosage: UNK
     Route: 065
  5. CEFAZOLIN SODIUM (WATSON LABORATORIES) [Suspect]
     Active Substance: CEFAZOLIN SODIUM
     Indication: PRODUCT USED FOR UNKNOWN INDICATION
     Dosage: 1 G, UNKNOWN
     Route: 033

REACTIONS (1)
  - Multiple-drug resistance [Unknown]
